FAERS Safety Report 9313088 (Version 1)
Quarter: 2013Q2

REPORT INFORMATION
  Report Type: Spontaneous
  Country: US (occurrence: US)
  Receive Date: 20130528
  Receipt Date: 20130528
  Transmission Date: 20140414
  Serious: No
  Sender: FDA-Public Use
  Company Number: US-ABBOTT-13P-163-1078545-00

PATIENT
  Age: 48 Year
  Sex: Male
  Weight: 143.01 kg

DRUGS (1)
  1. ANDROGEL [Suspect]
     Indication: BLOOD TESTOSTERONE DECREASED
     Dosage: 2 PUMPS, HAS NOT STARTED IT YET
     Route: 061

REACTIONS (1)
  - Drug prescribing error [Not Recovered/Not Resolved]
